FAERS Safety Report 4412283-2 (Version None)
Quarter: 2004Q2

REPORT INFORMATION
  Report Type: 
  Country: None (occurrence: None)
  Receive Date: 20040630
  Receipt Date: 20040316
  Transmission Date: 20050107
  Serious: No
  Sender: FDA-Public Use
  Company Number: 04P-163-0253744-00

PATIENT
  Age: 88 Year
  Sex: Female
  Weight: 78.9259 kg

DRUGS (4)
  1. HUMIRA [Suspect]
     Indication: RHEUMATOID ARTHRITIS
     Dosage: 40 MG, 1 IN 2 WK, SUBCUTANEOUS
     Route: 058
     Dates: start: 20040309
  2. PREDNISONE [Concomitant]
  3. PAROXETINE HYDROCHLORIDE [Concomitant]
  4. ALENDRONATE SODIUM [Concomitant]

REACTIONS (2)
  - ANOREXIA [None]
  - NAUSEA [None]
